FAERS Safety Report 13927586 (Version 1)
Quarter: 2017Q3

REPORT INFORMATION
  Report Type: Spontaneous
  Country: CH (occurrence: CH)
  Receive Date: 20170901
  Receipt Date: 20170901
  Transmission Date: 20171127
  Serious: Yes (Hospitalization)
  Sender: FDA-Public Use
  Company Number: CH-LPDUSPRD-20171195

PATIENT
  Age: 80 Year
  Sex: Female

DRUGS (15)
  1. LISINOPRIL. [Concomitant]
     Active Substance: LISINOPRIL
     Dosage: UNKNOWN
     Route: 065
  2. ELTROXIN [Concomitant]
     Active Substance: LEVOTHYROXINE
     Dosage: UNKNOWN
     Route: 065
  3. XARELTO [Concomitant]
     Active Substance: RIVAROXABAN
     Dosage: 20 MG
     Route: 048
  4. PADMEN CIRCOSAN [Concomitant]
     Dosage: UNKNOWN
     Route: 065
  5. TARDYFERON [Concomitant]
     Active Substance: FERROUS SULFATE
  6. FERINJECT [Suspect]
     Active Substance: FERRIC CARBOXYMALTOSE
     Dosage: 1000 MG
     Route: 041
     Dates: start: 20170725, end: 20170725
  7. ATORVASTATIN [Concomitant]
     Active Substance: ATORVASTATIN
     Dosage: UNKNOWN
     Route: 065
  8. TOREM [Concomitant]
     Active Substance: TORSEMIDE
     Dosage: UNKNOWN
     Route: 065
  9. NOVALGIN [Concomitant]
     Active Substance: METAMIZOLE SODIUM
     Dosage: UNKNOWN
     Route: 065
  10. NATRIUMHYDROGENCARBONAT [Concomitant]
     Active Substance: SODIUM BICARBONATE
     Dosage: UNKNOWN
     Route: 065
  11. CAMPHOR/ CALCIUM SULFATE [Concomitant]
     Dosage: UNKNOWN
     Route: 065
  12. PREGABALIN. [Concomitant]
     Active Substance: PREGABALIN
     Dosage: UNKNOWN
     Route: 065
  13. CITALOPRAM [Concomitant]
     Active Substance: CITALOPRAM HYDROBROMIDE
     Dosage: UNKNOWN
     Route: 065
  14. ESOMEP [Concomitant]
     Active Substance: ESOMEPRAZOLE
     Dosage: UNKNOWN
     Route: 065
  15. ZALIDAR [Concomitant]
     Dosage: UNKNOWN
     Route: 065

REACTIONS (5)
  - Infusion site induration [Recovering/Resolving]
  - Infusion site extravasation [Recovering/Resolving]
  - Overdose [Unknown]
  - Infusion site discolouration [Recovering/Resolving]
  - Infusion site erythema [Recovering/Resolving]

NARRATIVE: CASE EVENT DATE: 20170727
